FAERS Safety Report 9225383 (Version 1)
Quarter: 2013Q2

REPORT INFORMATION
  Report Type: Spontaneous
  Country: FR (occurrence: FR)
  Receive Date: 20130411
  Receipt Date: 20130411
  Transmission Date: 20140414
  Serious: Yes (Life-Threatening, Other)
  Sender: FDA-Public Use
  Company Number: FR-ELI_LILLY_AND_COMPANY-FR201304002970

PATIENT
  Age: 68 Year
  Sex: Female

DRUGS (2)
  1. EFIENT [Suspect]
     Dosage: 10 MG, UNKNOWN
     Route: 048
     Dates: start: 20120213, end: 201212
  2. KARDEGIC [Concomitant]
     Dosage: 75 MG, UNK

REACTIONS (5)
  - Extradural haematoma [Not Recovered/Not Resolved]
  - Paraparesis [Not Recovered/Not Resolved]
  - Bladder dysfunction [Not Recovered/Not Resolved]
  - Anorectal disorder [Not Recovered/Not Resolved]
  - Thrombosis in device [Recovered/Resolved]
